FAERS Safety Report 4948827-1 (Version None)
Quarter: 2006Q1

REPORT INFORMATION
  Report Type: 
  Country: None (occurrence: None)
  Receive Date: 20060321
  Receipt Date: 20060314
  Transmission Date: 20060701
  Serious: Yes (Other)
  Sender: FDA-Public Use
  Company Number: CA-JNJFOC-20060301346

PATIENT
  Sex: Male
  Weight: 61.24 kg

DRUGS (7)
  1. ELMIRON [Suspect]
     Route: 048
  2. ELMIRON [Suspect]
     Indication: CYSTITIS INTERSTITIAL
     Route: 048
  3. PROSCAR [Concomitant]
     Route: 048
  4. DEMEROL [Concomitant]
     Indication: PROSTATIC PAIN
  5. DEMEROL [Concomitant]
     Indication: BLADDER PAIN
     Dosage: PRN
  6. IBUPROFEN [Concomitant]
     Indication: PAIN
     Route: 048
  7. ATIVAN [Concomitant]

REACTIONS (3)
  - BENIGN PROSTATIC HYPERPLASIA [None]
  - COLITIS ULCERATIVE [None]
  - HAEMATOCHEZIA [None]
